FAERS Safety Report 10214007 (Version 1)
Quarter: 2014Q2

REPORT INFORMATION
  Report Type: Spontaneous
  Country: IT (occurrence: IT)
  Receive Date: 20140603
  Receipt Date: 20140603
  Transmission Date: 20141212
  Serious: Yes (Other)
  Sender: FDA-Public Use
  Company Number: IT-ACTAVIS-2014-11505

PATIENT
  Age: 63 Year
  Sex: Male
  Weight: 80 kg

DRUGS (5)
  1. OXALIPLATIN (UNKNOWN) [Suspect]
     Indication: COLON CANCER METASTATIC
     Dosage: 400 MG, CYCLICAL
     Route: 042
     Dates: start: 20130621, end: 20131122
  2. AVASTIN                            /01555201/ [Suspect]
     Indication: COLON CANCER METASTATIC
     Dosage: 400 MG, CYCLICAL
     Route: 042
     Dates: start: 20130621, end: 20131122
  3. 5-FLUOROURACIL                     /00098801/ [Suspect]
     Indication: COLON CANCER METASTATIC
     Dosage: 760 MG, CYCLICAL
     Route: 040
     Dates: start: 20130621, end: 20131122
  4. 5-FLUOROURACIL                     /00098801/ [Suspect]
     Dosage: 4560 MG, CYCLICAL
     Route: 041
     Dates: start: 20130621, end: 20131122
  5. FOLINIC ACID [Concomitant]
     Indication: PRODUCT USED FOR UNKNOWN INDICATION
     Dosage: 380 MG, UNK
     Route: 042
     Dates: start: 20130621, end: 20131122

REACTIONS (1)
  - Anaemia [Recovering/Resolving]
